FAERS Safety Report 9305954 (Version 1)
Quarter: 2013Q2

REPORT INFORMATION
  Report Type: Spontaneous
  Country: US (occurrence: US)
  Receive Date: 20130523
  Receipt Date: 20130523
  Transmission Date: 20140414
  Serious: Yes (Hospitalization, Other)
  Sender: FDA-Public Use
  Company Number: US-PFIZER INC-2013155728

PATIENT
  Age: 63 Year
  Sex: Female
  Weight: 72.56 kg

DRUGS (5)
  1. NORVASC [Suspect]
     Indication: HYPERTENSION
     Dosage: 10 MG, DAILY
  2. LORAZEPAM [Concomitant]
     Indication: ANXIETY
     Dosage: 2 MG, 3X/DAY
  3. LORAZEPAM [Concomitant]
     Indication: DEPRESSION
  4. PLAVIX [Concomitant]
     Indication: CARDIAC OPERATION
     Dosage: 75 MG, DAILY
     Route: 048
  5. CRESTOR [Concomitant]
     Indication: BLOOD CHOLESTEROL INCREASED
     Dosage: 20 MG, DAILY
     Route: 048

REACTIONS (1)
  - Pneumonia [Recovered/Resolved]
